FAERS Safety Report 23888565 (Version 1)
Quarter: 2024Q2

REPORT INFORMATION
  Report Type: Spontaneous
  Country: US (occurrence: None)
  Receive Date: 20240522
  Receipt Date: 20240522
  Transmission Date: 20240715
  Serious: Yes (Hospitalization)
  Sender: FDA-Public Use
  Company Number: None

PATIENT
  Age: 58 Year
  Sex: Female
  Weight: 85.3 kg

DRUGS (1)
  1. KYMRIAH [Suspect]
     Active Substance: TISAGENLECLEUCEL
     Indication: Follicular lymphoma
     Dosage: 1 DF DOSAGE FORM ONCE INTRAVENOUS?
     Route: 042
     Dates: start: 20240403, end: 20240403

REACTIONS (2)
  - Pyrexia [None]
  - Cytokine release syndrome [None]

NARRATIVE: CASE EVENT DATE: 20240404
